FAERS Safety Report 10409461 (Version 3)
Quarter: 2014Q4

REPORT INFORMATION
  Report Type: Spontaneous
  Country: IT (occurrence: None)
  Receive Date: 20140822
  Receipt Date: 20141210
  Transmission Date: 20150528
  Serious: Yes (Death)
  Sender: FDA-Public Use
  Company Number: 2487544

PATIENT
  Age: 66 Year
  Sex: Male
  Weight: 85 kg

DRUGS (6)
  1. FOLINIC ACID [Concomitant]
     Active Substance: LEUCOVORIN
  2. ALOXI [Concomitant]
     Active Substance: PALONOSETRON HYDROCHLORIDE
  3. RANITIDINE [Concomitant]
     Active Substance: RANITIDINE\RANITIDINE HYDROCHLORIDE
  4. FLUOROURACIL. [Concomitant]
     Active Substance: FLUOROURACIL
  5. OXALIPLATIN. [Suspect]
     Active Substance: OXALIPLATIN
     Indication: ADENOCARCINOMA OF COLON
     Dosage: 85 MG/M 2 MILLIGRAM(S)/SQ. METER (TOTAL), INTRAVENOUS (NOT OTHERWISE SPECIFIED) ?
     Route: 042
     Dates: start: 20140723, end: 20140723
  6. DEXAMETHASONE DISODIUM PROSPHATE [Concomitant]

REACTIONS (5)
  - Pulse absent [None]
  - Fall [None]
  - Ventricular fibrillation [None]
  - Cardiotoxicity [None]
  - Circulatory collapse [None]

NARRATIVE: CASE EVENT DATE: 20140723
